FAERS Safety Report 18458429 (Version 1)
Quarter: 2020Q4

REPORT INFORMATION
  Report Type: Spontaneous
  Country: US (occurrence: US)
  Receive Date: 20201103
  Receipt Date: 20201103
  Transmission Date: 20210114
  Serious: Yes (Death)
  Sender: FDA-Public Use
  Company Number: None

PATIENT
  Age: 43 Year
  Sex: Male

DRUGS (1)
  1. KENALOG [Suspect]
     Active Substance: TRIAMCINOLONE ACETONIDE
     Indication: NECK INJURY
     Route: 030
     Dates: start: 20200313, end: 20200313

REACTIONS (2)
  - Cardiac arrest [None]
  - Myocardial infarction [None]

NARRATIVE: CASE EVENT DATE: 20200316
